FAERS Safety Report 12132986 (Version 3)
Quarter: 2017Q3

REPORT INFORMATION
  Report Type: Spontaneous
  Country: US (occurrence: US)
  Receive Date: 20160301
  Receipt Date: 20170922
  Transmission Date: 20171127
  Serious: Yes (Death, Hospitalization, Other)
  Sender: FDA-Public Use
  Company Number: US-JNJFOC-20160104991

PATIENT
  Age: 82 Year
  Sex: Female
  Weight: 67.13 kg

DRUGS (22)
  1. PREDNISONE. [Concomitant]
     Active Substance: PREDNISONE
  2. PLAQUENIL [Concomitant]
     Active Substance: HYDROXYCHLOROQUINE SULFATE
  3. DUONEB [Concomitant]
     Active Substance: ALBUTEROL SULFATE\IPRATROPIUM BROMIDE
  4. FISH OIL OMEGA 3 [Concomitant]
     Active Substance: FISH OIL
  5. LASIX [Concomitant]
     Active Substance: FUROSEMIDE
     Route: 048
  6. FERREX [Concomitant]
     Active Substance: FERRIC POLYSACCHARIDE COMPLEX
  7. XARELTO [Suspect]
     Active Substance: RIVAROXABAN
     Indication: THROMBOSIS PROPHYLAXIS
     Route: 048
     Dates: start: 20120430, end: 20130116
  8. SPIRIVA [Concomitant]
     Active Substance: TIOTROPIUM BROMIDE MONOHYDRATE
  9. METOPROLOL SUCCINATE. [Concomitant]
     Active Substance: METOPROLOL SUCCINATE
     Route: 048
  10. RITUXAN [Concomitant]
     Active Substance: RITUXIMAB
  11. ALBUTEROL SULFATE. [Concomitant]
     Active Substance: ALBUTEROL SULFATE
  12. E-VITAMIN [Concomitant]
  13. DALIRESP [Concomitant]
     Active Substance: ROFLUMILAST
  14. IRON [Concomitant]
     Active Substance: IRON
  15. XARELTO [Suspect]
     Active Substance: RIVAROXABAN
     Indication: ATRIAL FIBRILLATION
     Route: 048
     Dates: start: 20120430, end: 20130116
  16. ADVAIR HFA [Concomitant]
     Active Substance: FLUTICASONE PROPIONATE\SALMETEROL XINAFOATE
     Dosage: 250/50 PUFF
  17. VITAMINS NOS [Concomitant]
     Active Substance: VITAMINS
  18. XARELTO [Suspect]
     Active Substance: RIVAROXABAN
     Indication: CEREBROVASCULAR ACCIDENT PROPHYLAXIS
     Route: 048
     Dates: start: 20120430, end: 20130116
  19. VITAMIN C [Concomitant]
     Active Substance: ASCORBIC ACID
  20. PREVACID [Concomitant]
     Active Substance: LANSOPRAZOLE
  21. CARDIZEM CD [Concomitant]
     Active Substance: DILTIAZEM HYDROCHLORIDE
     Route: 048
  22. MUCINEX [Concomitant]
     Active Substance: GUAIFENESIN

REACTIONS (2)
  - Anaemia [Recovered/Resolved]
  - Gastrointestinal haemorrhage [Recovered/Resolved]

NARRATIVE: CASE EVENT DATE: 20130116
